FAERS Safety Report 25079228 (Version 1)
Quarter: 2025Q1

REPORT INFORMATION
  Report Type: Spontaneous
  Country: US (occurrence: US)
  Receive Date: 20250314
  Receipt Date: 20250314
  Transmission Date: 20250409
  Serious: Yes (Other)
  Sender: JOHNSON AND JOHNSON
  Company Number: US-JNJFOC-20250316927

PATIENT
  Sex: Male

DRUGS (2)
  1. HALOPERIDOL DECANOATE [Suspect]
     Active Substance: HALOPERIDOL DECANOATE
     Indication: Dementia
     Route: 065
  2. THORAZINE [Suspect]
     Active Substance: CHLORPROMAZINE
     Indication: Dementia
     Route: 030

REACTIONS (8)
  - Tardive dyskinesia [Unknown]
  - Ocular discomfort [Unknown]
  - Feeling abnormal [Unknown]
  - Blood pressure diastolic decreased [Unknown]
  - Dizziness [Unknown]
  - Restlessness [Unknown]
  - Off label use [Unknown]
  - Off label use [Unknown]
